FAERS Safety Report 23124641 (Version 1)
Quarter: 2023Q4

REPORT INFORMATION
  Report Type: Spontaneous
  Country: CN (occurrence: CN)
  Receive Date: 20231030
  Receipt Date: 20231030
  Transmission Date: 20240109
  Serious: Yes (Hospitalization)
  Sender: FDA-Public Use
  Company Number: CN-MYLANLABS-2023M1112257

PATIENT

DRUGS (1)
  1. CELEBREX [Suspect]
     Active Substance: CELECOXIB
     Indication: Pain in extremity
     Dosage: 200 MILLIGRAM, BID
     Route: 048

REACTIONS (4)
  - Myocardial infarction [Unknown]
  - Eyelid ptosis [Unknown]
  - Swelling face [Unknown]
  - Skin wrinkling [Unknown]
